FAERS Safety Report 6144901-5 (Version None)
Quarter: 2009Q2

REPORT INFORMATION
  Report Type: 
  Country: None (occurrence: None)
  Receive Date: 20090402
  Receipt Date: 20090402
  Transmission Date: 20091009
  Serious: Yes (Life-Threatening)
  Sender: FDA-Public Use
  Company Number: None

PATIENT
  Age: 40 Year
  Sex: Male
  Weight: 113 kg

DRUGS (4)
  1. LEVAQUIN [Suspect]
     Indication: OSTEOMYELITIS
     Dosage: 500 MG Q24H IV DRIP
     Route: 041
     Dates: start: 20090331, end: 20090331
  2. LEVAQUIN [Suspect]
     Indication: PNEUMONIA
     Dosage: 500 MG Q24H IV DRIP
     Route: 041
     Dates: start: 20090331, end: 20090331
  3. LEVAQUIN [Suspect]
     Indication: SEPSIS
     Dosage: 500 MG Q24H IV DRIP
     Route: 041
     Dates: start: 20090331, end: 20090331
  4. LEVAQUIN [Suspect]
     Indication: URINARY TRACT INFECTION
     Dosage: 500 MG Q24H IV DRIP
     Route: 041
     Dates: start: 20090331, end: 20090331

REACTIONS (3)
  - CARDIAC ARREST [None]
  - PULSE ABSENT [None]
  - VENTRICULAR TACHYCARDIA [None]
